FAERS Safety Report 5158841-1 (Version None)
Quarter: 2006Q4

REPORT INFORMATION
  Report Type: 
  Country: None (occurrence: None)
  Receive Date: 20061117
  Receipt Date: 20061107
  Transmission Date: 20070319
  Serious: Yes (Hospitalization)
  Sender: FDA-Public Use
  Company Number: 2006137769

PATIENT
  Age: 1 Day
  Sex: Female
  Weight: 1.68 kg

DRUGS (5)
  1. XANAX [Suspect]
     Indication: BIPOLAR DISORDER
     Dosage: 0.75 MG (3 IN 1 D), PLACENTAL
     Dates: end: 20060806
  2. ANAFRANIL [Suspect]
     Indication: BIPOLAR DISORDER
     Dosage: 75 MG (75 MG, 1 IN 1 D), PLACENTAL
     Dates: start: 20060424, end: 20060806
  3. CHLORPROMAZINE HCL [Suspect]
     Indication: BIPOLAR DISORDER
     Dosage: 30 DROP (10 DROP, 3 IN 1 D), PLACENTAL
     Dates: end: 20060806
  4. DEPAKOTE [Suspect]
     Indication: BIPOLAR DISORDER
     Dosage: 500 MG (250 MG, 2 IN 1 D), PLACENTAL
     Dates: start: 20060503, end: 20060806
  5. ZOLPIDEM TARTRATE [Suspect]
     Indication: BIPOLAR DISORDER
     Dosage: 1 IN 1 D, PLACENTAL
     Dates: start: 20060806

REACTIONS (6)
  - AGITATION NEONATAL [None]
  - CAESAREAN SECTION [None]
  - DRUG EXPOSURE DURING PREGNANCY [None]
  - DRUG WITHDRAWAL SYNDROME NEONATAL [None]
  - NEONATAL RESPIRATORY DISTRESS SYNDROME [None]
  - PREMATURE BABY [None]
